FAERS Safety Report 5601466-1 (Version None)
Quarter: 2007Q4

REPORT INFORMATION
  Report Type: 
  Country: None (occurrence: None)
  Receive Date: 20071231
  Receipt Date: 20071023
  Transmission Date: 20080405
  Serious: Yes (Hospitalization)
  Sender: FDA-Public Use
  Company Number: 163136USA

PATIENT
  Age: 51 Year
  Sex: Male

DRUGS (5)
  1. CLOZAPINE [Suspect]
     Indication: SCHIZOPHRENIA
     Dosage: 1-TABLET IN AM, AND 2-TABLETS AT NIGHT (100 MG,3 IN 1 D),ORAL
     Route: 048
     Dates: start: 20020101
  2. RISPERIDONE [Concomitant]
  3. VALPROATE SODIUM [Concomitant]
  4. FLUOXETINE HYDROCHLORIDE [Concomitant]
  5. DOCUSATE SODIUM [Concomitant]

REACTIONS (3)
  - CONSTIPATION [None]
  - INTESTINAL OBSTRUCTION [None]
  - VOMITING [None]
